FAERS Safety Report 9495264 (Version 1)
Quarter: 2013Q3

REPORT INFORMATION
  Report Type: Spontaneous
  Country: DE (occurrence: DE)
  Receive Date: 20130903
  Receipt Date: 20130903
  Transmission Date: 20140515
  Serious: Yes (Hospitalization)
  Sender: FDA-Public Use
  Company Number: DE-GLAXOSMITHKLINE-D0080838A

PATIENT
  Age: 45 Year
  Sex: Female
  Weight: 80 kg

DRUGS (9)
  1. BENLYSTA [Suspect]
     Indication: SYSTEMIC LUPUS ERYTHEMATOSUS
     Dosage: 800MG SINGLE DOSE
     Route: 042
     Dates: start: 20130604, end: 20130604
  2. QUENSYL [Suspect]
     Indication: SYSTEMIC LUPUS ERYTHEMATOSUS
     Dosage: 200MG AT NIGHT
     Route: 065
     Dates: start: 201103
  3. COTRIM [Concomitant]
     Dosage: 1920MG THREE TIMES PER WEEK
     Route: 065
  4. PANTOZOL [Concomitant]
     Dosage: 40MG IN THE MORNING
     Route: 065
  5. CARVEDILOL [Concomitant]
     Dosage: 6.25MG TWICE PER DAY
     Route: 065
  6. ARELIX [Concomitant]
     Dosage: 6MG IN THE MORNING
     Route: 065
  7. AMINEURIN [Concomitant]
     Dosage: 25MG AT NIGHT
     Route: 065
  8. DEKRISTOL [Concomitant]
     Dosage: 20000IU WEEKLY
     Route: 065
  9. BIFITERAL [Concomitant]
     Dosage: 10ML AS REQUIRED
     Route: 065

REACTIONS (7)
  - Atrial septal defect [Unknown]
  - Peripheral embolism [Recovering/Resolving]
  - Pain in extremity [Recovering/Resolving]
  - Intermittent claudication [Recovered/Resolved]
  - Skin discolouration [Recovering/Resolving]
  - Paraesthesia [Recovering/Resolving]
  - Haematoma [Unknown]
